FAERS Safety Report 5786410-9 (Version None)
Quarter: 2008Q2

REPORT INFORMATION
  Report Type: 
  Country: None (occurrence: None)
  Receive Date: 20080624
  Receipt Date: 20080616
  Transmission Date: 20081010
  Serious: Yes (Other)
  Sender: FDA-Public Use
  Company Number: US-PFIZER INC-2008050910

PATIENT
  Sex: Female
  Weight: 128.8 kg

DRUGS (6)
  1. DEPO-PROVERA SUSPENSION/INJ [Suspect]
     Indication: CONTRACEPTION
     Dosage: FREQ:FIRST INJECTION
     Dates: start: 19950101, end: 19950101
  2. DEPO-PROVERA SUSPENSION/INJ [Suspect]
     Dosage: FREQ:LAST INJECTION
  3. XANAX [Suspect]
     Indication: ANXIETY
     Route: 048
  4. NEXIUM [Concomitant]
  5. KLOR-CON [Concomitant]
  6. TRIAMTERENE AND HYDROCHLOROTHIAZIDE [Concomitant]

REACTIONS (9)
  - AMENORRHOEA [None]
  - ANXIETY [None]
  - ASTHMA [None]
  - CHEST PAIN [None]
  - CHRONIC OBSTRUCTIVE PULMONARY DISEASE [None]
  - CYANOSIS [None]
  - GLUCOSE TOLERANCE IMPAIRED [None]
  - PARANOIA [None]
  - WEIGHT INCREASED [None]
